FAERS Safety Report 20907493 (Version 1)
Quarter: 2022Q2

REPORT INFORMATION
  Report Type: Spontaneous
  Country: US (occurrence: US)
  Receive Date: 20220602
  Receipt Date: 20220602
  Transmission Date: 20220721
  Serious: No
  Sender: FDA-Public Use
  Company Number: US-BAYER-2022A076260

PATIENT
  Age: 27 Year
  Sex: Female

DRUGS (2)
  1. MIRENA [Suspect]
     Active Substance: LEVONORGESTREL
     Indication: Contraception
     Dosage: 20?G/DAY
     Route: 015
     Dates: start: 20171020, end: 20190215
  2. PROZAC [Concomitant]
     Active Substance: FLUOXETINE HYDROCHLORIDE

REACTIONS (8)
  - Nausea [Recovered/Resolved with Sequelae]
  - Headache [Recovered/Resolved with Sequelae]
  - Depression [Recovered/Resolved with Sequelae]
  - Anxiety [Recovered/Resolved with Sequelae]
  - Libido decreased [Recovered/Resolved with Sequelae]
  - Vomiting [Recovered/Resolved with Sequelae]
  - Abdominal pain lower [Recovered/Resolved with Sequelae]
  - Menstruation irregular [Recovered/Resolved with Sequelae]

NARRATIVE: CASE EVENT DATE: 20171020
